FAERS Safety Report 23708521 (Version 2)
Quarter: 2024Q3

REPORT INFORMATION
  Report Type: Spontaneous
  Country: US (occurrence: US)
  Receive Date: 20240404
  Receipt Date: 20240701
  Transmission Date: 20241017
  Serious: No
  Sender: PFIZER
  Company Number: US-PFIZER INC-202400076897

PATIENT
  Age: 17 Year
  Sex: Female

DRUGS (2)
  1. CIBINQO [Suspect]
     Active Substance: ABROCITINIB
     Indication: Dermatitis atopic
     Dosage: 100MG ONCE DAILY
  2. CIBINQO [Suspect]
     Active Substance: ABROCITINIB
     Indication: Pruritus

REACTIONS (1)
  - Therapeutic product effect incomplete [Unknown]
